FAERS Safety Report 15060649 (Version 1)
Quarter: 2018Q2

REPORT INFORMATION
  Report Type: Spontaneous
  Country: US (occurrence: US)
  Receive Date: 20180623
  Receipt Date: 20180623
  Transmission Date: 20180711
  Serious: Yes (Other)
  Sender: FDA-Public Use
  Company Number: None

PATIENT
  Age: 38 Year
  Sex: Female
  Weight: 76.5 kg

DRUGS (2)
  1. NAUZENE (DEXTROSE\FRUCTOSE\TRISODIUM CITRATE DIHYDRATE) [Suspect]
     Active Substance: DEXTROSE\FRUCTOSE\TRISODIUM CITRATE DIHYDRATE
     Indication: NAUSEA
     Route: 048
     Dates: start: 20180617, end: 20180617
  2. NAUZENE HOMEOPATHIC [Suspect]
     Active Substance: HOMEOPATHICS

REACTIONS (3)
  - Muscle tightness [None]
  - Seizure [None]
  - Dyspnoea [None]

NARRATIVE: CASE EVENT DATE: 20180617
